FAERS Safety Report 9330640 (Version 1)
Quarter: 2013Q2

REPORT INFORMATION
  Report Type: Report from Study
  Country: ID (occurrence: ID)
  Receive Date: 20130605
  Receipt Date: 20130605
  Transmission Date: 20140414
  Serious: Yes (Hospitalization)
  Sender: FDA-Public Use
  Company Number: ID-ROCHE-1232335

PATIENT
  Age: 42 Year
  Sex: Female
  Weight: 60.3 kg

DRUGS (1)
  1. XENICAL [Suspect]
     Indication: OVERWEIGHT
     Route: 048

REACTIONS (1)
  - Nephrolithiasis [Unknown]
